FAERS Safety Report 7417606-8 (Version None)
Quarter: 2011Q2

REPORT INFORMATION
  Report Type: 
  Country: None (occurrence: None)
  Receive Date: 20110412
  Receipt Date: 20110412
  Transmission Date: 20111010
  Serious: Yes (Life-Threatening, Hospitalization)
  Sender: FDA-Public Use
  Company Number: None

PATIENT
  Sex: Male
  Weight: 70.3075 kg

DRUGS (2)
  1. TERAZOSIN HCL [Suspect]
     Indication: PROSTATOMEGALY
     Dates: start: 20060901
  2. TERAZOSIN HCL [Suspect]
     Indication: HYPERTENSION
     Dates: start: 20060901

REACTIONS (1)
  - CARDIO-RESPIRATORY ARREST [None]
